FAERS Safety Report 12751843 (Version 2)
Quarter: 2016Q3

REPORT INFORMATION
  Report Type: Spontaneous
  Country: US (occurrence: US)
  Receive Date: 20160915
  Receipt Date: 20160923
  Transmission Date: 20161109
  Serious: No
  Sender: FDA-Public Use
  Company Number: US-SHIRE-US201611449

PATIENT
  Age: 16 Year
  Sex: Male
  Weight: 52.15 kg

DRUGS (4)
  1. ADDERALL XR [Suspect]
     Active Substance: AMPHETAMINE ASPARTATE\AMPHETAMINE SULFATE\DEXTROAMPHETAMINE SACCHARATE\DEXTROAMPHETAMINE SULFATE
     Dosage: 20 MG (TWO 10 MG), 1X/DAY:QD (IN THE MORNING)
     Route: 048
     Dates: start: 20160824
  2. ADDERALL XR [Suspect]
     Active Substance: AMPHETAMINE ASPARTATE\AMPHETAMINE SULFATE\DEXTROAMPHETAMINE SACCHARATE\DEXTROAMPHETAMINE SULFATE
     Indication: ATTENTION DEFICIT/HYPERACTIVITY DISORDER
     Dosage: 20 MG (TWO 10 MG), 1X/DAY:QD (IN THE MORNING)
     Route: 048
     Dates: start: 2015, end: 2016
  3. ADDERALL XR [Suspect]
     Active Substance: AMPHETAMINE ASPARTATE\AMPHETAMINE SULFATE\DEXTROAMPHETAMINE SACCHARATE\DEXTROAMPHETAMINE SULFATE
     Dosage: 10 MG, 1X/DAY:QD (RIGHT BEFORE LUNCH)
     Route: 048
     Dates: start: 2015, end: 2016
  4. ADDERALL XR [Suspect]
     Active Substance: AMPHETAMINE ASPARTATE\AMPHETAMINE SULFATE\DEXTROAMPHETAMINE SACCHARATE\DEXTROAMPHETAMINE SULFATE
     Dosage: 10 MG, 1X/DAY:QD (RIGHT BEFORE LUNCH)
     Route: 048
     Dates: start: 20160824

REACTIONS (2)
  - Inappropriate schedule of drug administration [Unknown]
  - Rash [Recovered/Resolved]

NARRATIVE: CASE EVENT DATE: 2015
